FAERS Safety Report 6184115-6 (Version None)
Quarter: 2009Q2

REPORT INFORMATION
  Report Type: 
  Country: None (occurrence: None)
  Receive Date: 20090429
  Receipt Date: 20090422
  Transmission Date: 20091009
  Serious: Yes (Other)
  Sender: FDA-Public Use
  Company Number: JHP200900125

PATIENT
  Age: 61 Year
  Sex: Female

DRUGS (1)
  1. APLISOL [Suspect]
     Dosage: WAS CIRCULATING IN THE AIR IN THE ROOM, OTHER
     Route: 050
     Dates: start: 20090101, end: 20090101

REACTIONS (6)
  - ACCIDENTAL EXPOSURE [None]
  - BLOOD PRESSURE INCREASED [None]
  - DIZZINESS [None]
  - DYSGEUSIA [None]
  - DYSPHAGIA [None]
  - DYSPHONIA [None]
